FAERS Safety Report 6773563-9 (Version None)
Quarter: 2010Q2

REPORT INFORMATION
  Report Type: 
  Country: None (occurrence: None)
  Receive Date: 20100611
  Receipt Date: 20100602
  Transmission Date: 20101027
  Serious: Yes (Hospitalization)
  Sender: FDA-Public Use
  Company Number: 2010SP001470

PATIENT
  Age: 41 Year
  Sex: Female
  Weight: 88.4514 kg

DRUGS (13)
  1. CICLESONIDE HFA [Suspect]
     Indication: RHINITIS PERENNIAL
     Dosage: BID;NASAL; BID NASAL
     Route: 045
     Dates: start: 20100410, end: 20100506
  2. CICLESONIDE HFA [Suspect]
     Indication: RHINITIS PERENNIAL
     Dosage: BID;NASAL; BID NASAL
     Route: 045
     Dates: start: 20100516
  3. ALBUTEROL [Concomitant]
  4. WELLBUTRIN [Concomitant]
  5. CELEXA [Concomitant]
  6. PRENATAL VITAMINS /01549301/ [Concomitant]
  7. LISINOPRIL [Concomitant]
  8. HYDROCHLOROTHIAZIDE [Concomitant]
  9. SYNTHROID [Concomitant]
  10. BENADRYL [Concomitant]
  11. TYLENOL PM /01088101/ [Concomitant]
  12. MOTRIN [Concomitant]
  13. HYDROCORTISONE /00028604/ [Concomitant]

REACTIONS (11)
  - ACCIDENTAL OVERDOSE [None]
  - BIPOLAR DISORDER [None]
  - CRYING [None]
  - DEPRESSION [None]
  - DRY EYE [None]
  - DRY MOUTH [None]
  - MENTAL STATUS CHANGES [None]
  - MYDRIASIS [None]
  - STARING [None]
  - STRESS [None]
  - TEARFULNESS [None]
